FAERS Safety Report 9803448 (Version 2)
Quarter: 2014Q1

REPORT INFORMATION
  Report Type: Not Available
  Country: SE (occurrence: SE)
  Receive Date: 20140108
  Receipt Date: 20140320
  Transmission Date: 20141002
  Serious: Yes (Hospitalization)
  Sender: FDA-Public Use
  Company Number: SE-NAPPMUNDI-GBR-2013-0016800

PATIENT
  Age: 93 Year
  Sex: Female

DRUGS (4)
  1. OXYNORM 10 MG KAPSEL, HARD [Suspect]
     Indication: PRODUCT USED FOR UNKNOWN INDICATION
     Dosage: 10 MG, UNK
     Route: 065
  2. DIGOXIN [Suspect]
     Indication: PRODUCT USED FOR UNKNOWN INDICATION
     Dosage: 60 UNK, UNK
     Route: 065
  3. LASIX /00032601/ [Suspect]
     Indication: PRODUCT USED FOR UNKNOWN INDICATION
     Dosage: LASIX RETARD 60 MG, UNK
     Route: 065
  4. NORMORIX MITE [Suspect]
     Indication: PRODUCT USED FOR UNKNOWN INDICATION
     Dosage: 5 MG/50 MG TABLET
     Route: 065

REACTIONS (2)
  - Toxicity to various agents [Unknown]
  - Prerenal failure [Unknown]
